FAERS Safety Report 8512407-1 (Version None)
Quarter: 2012Q3

REPORT INFORMATION
  Report Type: 
  Country: None (occurrence: None)
  Receive Date: 20120716
  Receipt Date: 20120713
  Transmission Date: 20120928
  Serious: Yes (Hospitalization)
  Sender: FDA-Public Use
  Company Number: NL-ROCHE-1072295

PATIENT
  Sex: Male

DRUGS (12)
  1. ACTEMRA [Suspect]
     Route: 042
     Dates: start: 20111222
  2. NAPROXEN [Concomitant]
     Route: 048
  3. VENTOLIN [Concomitant]
     Indication: CHRONIC OBSTRUCTIVE PULMONARY DISEASE
  4. ACTEMRA [Suspect]
     Route: 042
     Dates: start: 20111027
  5. TOPAMAX [Concomitant]
     Indication: OSTEOPOROSIS
     Route: 048
  6. PREDNISONE [Concomitant]
     Indication: CHRONIC OBSTRUCTIVE PULMONARY DISEASE
     Route: 048
     Dates: start: 20120113
  7. SPIRIVA [Concomitant]
     Indication: CHRONIC OBSTRUCTIVE PULMONARY DISEASE
  8. ACTEMRA [Suspect]
     Route: 042
     Dates: start: 20110929
  9. ACTEMRA [Suspect]
     Indication: RHEUMATOID ARTHRITIS
     Route: 042
     Dates: start: 20110216
  10. FLECAINIDE ACETATE [Concomitant]
     Indication: SUPRAVENTRICULAR TACHYCARDIA
     Route: 048
  11. ACTEMRA [Suspect]
     Route: 042
     Dates: start: 20111129
  12. METHOTREXATE [Concomitant]
     Indication: RHEUMATOID ARTHRITIS
     Route: 048

REACTIONS (1)
  - BRONCHITIS CHRONIC [None]
